FAERS Safety Report 20085212 (Version 1)
Quarter: 2021Q4

REPORT INFORMATION
  Report Type: Spontaneous
  Country: US (occurrence: US)
  Receive Date: 20211118
  Receipt Date: 20211118
  Transmission Date: 20220303
  Serious: Yes (Hospitalization, Other)
  Sender: FDA-Public Use
  Company Number: US-TEVA-2021-US-1977509

PATIENT
  Sex: Female

DRUGS (2)
  1. CLONAZEPAM [Suspect]
     Active Substance: CLONAZEPAM
     Indication: Anxiety
     Route: 065
  2. CLONAZEPAM [Suspect]
     Active Substance: CLONAZEPAM
     Indication: Panic attack

REACTIONS (5)
  - Illness [Unknown]
  - Panic attack [Unknown]
  - Seizure [Unknown]
  - Drug ineffective [Unknown]
  - Product formulation issue [Unknown]

NARRATIVE: CASE EVENT DATE: 20210101
